FAERS Safety Report 9430889 (Version 1)
Quarter: 2013Q3

REPORT INFORMATION
  Report Type: Report from Study
  Country: US (occurrence: US)
  Receive Date: 20130730
  Receipt Date: 20130730
  Transmission Date: 20140515
  Serious: No
  Sender: FDA-Public Use
  Company Number: US-ABBOTT-13P-163-1114657-00

PATIENT
  Sex: Male
  Weight: 79.45 kg

DRUGS (6)
  1. NIASPAN (COATED) [Suspect]
     Indication: HIGH DENSITY LIPOPROTEIN DECREASED
     Dosage: EVERY NIGHT
  2. NIASPAN (COATED) [Suspect]
     Indication: BLOOD CHOLESTEROL INCREASED
     Dosage: 1 TABLET
     Dates: start: 2003
  3. ONE A DAY [Concomitant]
     Indication: PRODUCT USED FOR UNKNOWN INDICATION
  4. FISH TABLETS [Concomitant]
     Indication: PRODUCT USED FOR UNKNOWN INDICATION
  5. CADUET [Concomitant]
     Indication: HYPERTENSION
  6. ASPIRIN [Concomitant]
     Indication: PRODUCT USED FOR UNKNOWN INDICATION

REACTIONS (3)
  - Hypertension [Not Recovered/Not Resolved]
  - Flushing [Recovered/Resolved]
  - Pruritus [Recovered/Resolved]
